FAERS Safety Report 25530913 (Version 1)
Quarter: 2025Q3

REPORT INFORMATION
  Report Type: Spontaneous
  Country: US (occurrence: US)
  Receive Date: 20250708
  Receipt Date: 20250708
  Transmission Date: 20251020
  Serious: No
  Sender: Haleon PLC
  Company Number: US-HALEON-2251423

PATIENT

DRUGS (1)
  1. VOLTAREN [Suspect]
     Active Substance: DICLOFENAC SODIUM
     Indication: Arthritis

REACTIONS (2)
  - Nausea [Unknown]
  - Abdominal pain upper [Unknown]
